FAERS Safety Report 17578511 (Version 1)
Quarter: 2020Q1

REPORT INFORMATION
  Report Type: Spontaneous
  Country: US (occurrence: US)
  Receive Date: 20200324
  Receipt Date: 20200324
  Transmission Date: 20200409
  Serious: No
  Sender: FDA-Public Use
  Company Number: US-LUNDBECK-DKLU3013733

PATIENT
  Age: 46 Year
  Sex: Male

DRUGS (18)
  1. NORTHERA [Suspect]
     Active Substance: DROXIDOPA
     Dosage: DAY 3
     Route: 065
  2. NORTHERA [Suspect]
     Active Substance: DROXIDOPA
     Dosage: DAY 4, 3 HOURS BEFORE BEDTIME
     Route: 065
  3. NORTHERA [Suspect]
     Active Substance: DROXIDOPA
     Dosage: DAY 5
     Route: 065
  4. NORTHERA [Suspect]
     Active Substance: DROXIDOPA
     Dosage: DAY 6
     Route: 065
  5. NORTHERA [Suspect]
     Active Substance: DROXIDOPA
     Indication: ORTHOSTATIC HYPOTENSION
     Dosage: DAY 1
     Route: 065
  6. NORTHERA [Suspect]
     Active Substance: DROXIDOPA
     Dosage: DAY 4
     Route: 065
  7. NORTHERA [Suspect]
     Active Substance: DROXIDOPA
     Dosage: DAY 2
     Route: 065
  8. NORTHERA [Suspect]
     Active Substance: DROXIDOPA
     Dosage: DAY 2, 3 HOURS BEFORE BEDTIME
     Route: 065
  9. NORTHERA [Suspect]
     Active Substance: DROXIDOPA
     Dosage: DAY 3
     Route: 065
  10. NORTHERA [Suspect]
     Active Substance: DROXIDOPA
     Dosage: DAY 5
     Route: 065
  11. NORTHERA [Suspect]
     Active Substance: DROXIDOPA
     Dosage: DAY 1, 3 HOURS BEFORE BEDTIME
     Route: 065
  12. NORTHERA [Suspect]
     Active Substance: DROXIDOPA
     Dosage: DAY 4
     Route: 065
  13. NORTHERA [Suspect]
     Active Substance: DROXIDOPA
     Dosage: DAY 3, 3 HOURS BEFORE BEDTIME
     Route: 065
  14. NORTHERA [Suspect]
     Active Substance: DROXIDOPA
     Dosage: DAY 6, 3 HOURS BEFORE BEDTIME
     Route: 065
  15. NORTHERA [Suspect]
     Active Substance: DROXIDOPA
     Dosage: DAY 2
     Route: 065
  16. NORTHERA [Suspect]
     Active Substance: DROXIDOPA
     Dosage: DAY 5, 3 HOURS BEFORE BEDTIME
     Route: 065
  17. NORTHERA [Suspect]
     Active Substance: DROXIDOPA
     Dosage: DAY 1
     Route: 065
  18. NORTHERA [Suspect]
     Active Substance: DROXIDOPA
     Dosage: DAY 6
     Route: 065

REACTIONS (2)
  - Movement disorder [Unknown]
  - Muscle rigidity [Unknown]
